FAERS Safety Report 26071827 (Version 1)
Quarter: 2025Q4

REPORT INFORMATION
  Report Type: Spontaneous
  Country: KR (occurrence: KR)
  Receive Date: 20251120
  Receipt Date: 20251120
  Transmission Date: 20260118
  Serious: Yes (Other)
  Sender: NOVARTIS
  Company Number: KR-002147023-NVSC2025KR175918

PATIENT
  Age: 64 Year
  Sex: Male

DRUGS (4)
  1. PLUVICTO [Suspect]
     Active Substance: LUTETIUM LU-177 VIPIVOTIDE TETRAXETAN
     Indication: Prostate cancer
     Dosage: UNK
     Route: 065
     Dates: start: 20250722, end: 20250722
  2. PLUVICTO [Suspect]
     Active Substance: LUTETIUM LU-177 VIPIVOTIDE TETRAXETAN
     Indication: Metastases to bone
     Dosage: UNK
     Route: 065
     Dates: start: 20250923, end: 20250923
  3. PLUVICTO [Suspect]
     Active Substance: LUTETIUM LU-177 VIPIVOTIDE TETRAXETAN
     Indication: Metastases to lung
  4. PLUVICTO [Suspect]
     Active Substance: LUTETIUM LU-177 VIPIVOTIDE TETRAXETAN
     Indication: BRCA2 gene mutation

REACTIONS (4)
  - Blood bilirubin increased [Recovering/Resolving]
  - Platelet count decreased [Recovering/Resolving]
  - Haemoglobin decreased [Recovering/Resolving]
  - Prostatic specific antigen increased [Recovering/Resolving]
